FAERS Safety Report 5047429-9 (Version None)
Quarter: 2006Q3

REPORT INFORMATION
  Report Type: 
  Country: None (occurrence: None)
  Receive Date: 20060710
  Receipt Date: 20060710
  Transmission Date: 20061208
  Serious: Yes (Hospitalization)
  Sender: FDA-Public Use
  Company Number: None

PATIENT
  Age: 67 Year
  Sex: Male

DRUGS (11)
  1. VALSARTAN [Suspect]
     Indication: PROTEINURIA
     Dosage: 160MG PO QD
     Route: 048
     Dates: start: 20060327, end: 20060619
  2. ENALAPRIL MALEATE [Concomitant]
  3. ATENOLOL [Concomitant]
  4. CLONIDINE [Concomitant]
  5. METOLAZONE [Concomitant]
  6. GLIPIZIDE [Concomitant]
  7. SIMVASTATIN [Concomitant]
  8. CLONAZEPAM [Concomitant]
  9. TERAZOSIN HCL [Concomitant]
  10. PHENYTOIN [Concomitant]
  11. CITALOPRAM HYDROBROMIDE [Concomitant]

REACTIONS (1)
  - BLOOD POTASSIUM INCREASED [None]
